FAERS Safety Report 7393101-X (Version None)
Quarter: 2011Q2

REPORT INFORMATION
  Report Type: 
  Country: None (occurrence: None)
  Receive Date: 20110404
  Receipt Date: 20110328
  Transmission Date: 20111010
  Serious: Yes (Hospitalization)
  Sender: FDA-Public Use
  Company Number: GB-AMGEN-UK360990

PATIENT
  Age: 71 Year
  Sex: Male

DRUGS (2)
  1. PANITUMUMAB [Suspect]
     Indication: COLORECTAL CANCER
     Dosage: 610 MG, UNK
     Route: 042
     Dates: start: 20090807
  2. IRINOTECAN [Concomitant]
     Dosage: 540 MG, UNK
     Route: 042
     Dates: start: 20090807

REACTIONS (1)
  - ISCHAEMIA [None]
